FAERS Safety Report 4816688-7 (Version None)
Quarter: 2005Q4

REPORT INFORMATION
  Report Type: 
  Country: None (occurrence: None)
  Receive Date: 20051028
  Receipt Date: 20051021
  Transmission Date: 20060501
  Serious: Yes (Death, Other)
  Sender: FDA-Public Use
  Company Number: 163-20785-05030257

PATIENT
  Age: 82 Year
  Sex: Female

DRUGS (10)
  1. THALOMID [Suspect]
     Indication: MULTIPLE MYELOMA
     Dosage: 100 MG, QD, ORAL
     Route: 048
     Dates: start: 20020524, end: 20041229
  2. PAMIDRONATE DISODIUM [Concomitant]
  3. FERROUS SULFATE TAB [Concomitant]
  4. SYNTHROID [Concomitant]
  5. PROCRIT [Concomitant]
  6. CLONAZEPAM [Concomitant]
  7. FOLIC ACID [Concomitant]
  8. MVI (MULTIVITAMINS) [Concomitant]
  9. OXYBUTYNIN CHLORIDE (OXYBUTYNIN) [Concomitant]
  10. DONEPEZIL HCL [Concomitant]

REACTIONS (9)
  - ANAEMIA OF CHRONIC DISEASE [None]
  - CORONARY ARTERY DISEASE [None]
  - DEMENTIA ALZHEIMER'S TYPE [None]
  - DISEASE PROGRESSION [None]
  - DYSKINESIA [None]
  - EPISTAXIS [None]
  - NEUROPATHY PERIPHERAL [None]
  - RESPIRATORY ARREST [None]
  - THROMBOCYTOPENIA [None]
